FAERS Safety Report 5244605-7 (Version None)
Quarter: 2007Q1

REPORT INFORMATION
  Report Type: 
  Country: None (occurrence: None)
  Receive Date: 20070222
  Receipt Date: 20070208
  Transmission Date: 20070707
  Serious: Yes (Other)
  Sender: FDA-Public Use
  Company Number: US-SHR-US-2007-004707

PATIENT
  Age: 24 Year
  Sex: Female

DRUGS (1)
  1. BETASERON [Suspect]
     Dosage: 8 MIU, EVERY 2D
     Route: 058
     Dates: start: 20060214

REACTIONS (4)
  - DIARRHOEA [None]
  - DYSGEUSIA [None]
  - HAEMATOCHEZIA [None]
  - MOUTH HAEMORRHAGE [None]
